FAERS Safety Report 4664441-X (Version None)
Quarter: 2005Q2

REPORT INFORMATION
  Report Type: 
  Country: None (occurrence: None)
  Receive Date: 20050518
  Receipt Date: 20050506
  Transmission Date: 20051028
  Serious: Yes (Hospitalization)
  Sender: FDA-Public Use
  Company Number: US-JNJFOC-20050502564

PATIENT
  Age: 70 Year
  Sex: Male

DRUGS (1)
  1. INFLIXIMAB [Suspect]
     Indication: RHEUMATOID ARTHRITIS
     Dosage: IT HAD BEEN 25 DAYS SINCE THE LAST INFUSION AND THE PATIENT WAS INFUSED 15 DAYS LATER.
     Route: 042

REACTIONS (2)
  - JOINT ARTHROPLASTY [None]
  - RASH MACULO-PAPULAR [None]
